FAERS Safety Report 10285094 (Version 5)
Quarter: 2014Q4

REPORT INFORMATION
  Report Type: Spontaneous
  Country: US (occurrence: US)
  Receive Date: 20140708
  Receipt Date: 20141031
  Transmission Date: 20150528
  Serious: Yes (Hospitalization, Other)
  Sender: FDA-Public Use
  Company Number: US-009507513-1407USA002945

PATIENT
  Sex: Female
  Weight: 53.61 kg

DRUGS (4)
  1. ARMOUR THYROID [Concomitant]
     Active Substance: THYROID, PORCINE\THYROID, UNSPECIFIED
     Indication: HYPOTHYROIDISM
     Dosage: 60 MG, QD
     Dates: start: 20030319
  2. CALCIUM CARBONATE (+) VITAMIN D (UNSPECIFIED) [Concomitant]
     Active Substance: CALCIUM CARBONATE\VITAMIN D
     Dosage: UNK
     Dates: start: 2003
  3. FOSAMAX [Suspect]
     Active Substance: ALENDRONATE SODIUM
     Indication: OSTEOPOROSIS
     Dosage: 70 MG, QW
     Route: 048
     Dates: start: 20030319, end: 20131029
  4. ALENDRONATE SODIUM. [Suspect]
     Active Substance: ALENDRONATE SODIUM
     Indication: OSTEOPOROSIS
     Dosage: 70 MG, QW
     Route: 048
     Dates: start: 20111116, end: 20130322

REACTIONS (11)
  - Cataract operation [Unknown]
  - Acute sinusitis [Unknown]
  - Femur fracture [Recovered/Resolved]
  - Intramedullary rod insertion [Unknown]
  - Oedema peripheral [Unknown]
  - Back injury [Unknown]
  - Atrial fibrillation [Unknown]
  - Abdominal discomfort [Unknown]
  - Transient ischaemic attack [Unknown]
  - Abscess [Unknown]
  - Hypertension [Unknown]

NARRATIVE: CASE EVENT DATE: 20060407
